FAERS Safety Report 9292380 (Version 1)
Quarter: 2013Q1

REPORT INFORMATION
  Report Type: Spontaneous
  Country: US (occurrence: None)
  Receive Date: 20121214
  Receipt Date: 20121214
  Transmission Date: 20140127
  Serious: Yes (Other)
  Sender: FDA-Public Use
  Company Number: US-JNJFOC-2007330952

PATIENT
  Sex: Female

DRUGS (1)
  1. SUDAFED [Suspect]
     Indication: HYPERSENSITIVITY
     Dosage: 2 TABLETS ONE TIME
     Dates: start: 20070914, end: 20070914

REACTIONS (1)
  - Overdose [None]
